FAERS Safety Report 12616397 (Version 1)
Quarter: 2016Q3

REPORT INFORMATION
  Report Type: Spontaneous
  Country: ES (occurrence: ES)
  Receive Date: 20160802
  Receipt Date: 20160802
  Transmission Date: 20161109
  Serious: Yes (Other)
  Sender: FDA-Public Use
  Company Number: ES-TEVA-681161ISR

PATIENT
  Age: 58 Year
  Sex: Male

DRUGS (1)
  1. CARBOPLATINO TEVA 10 MG/ML CONCENTRADO PARA SOLUCION PARA PERFUSION, 1 [Suspect]
     Active Substance: CARBOPLATIN
     Indication: LUNG NEOPLASM MALIGNANT
     Dosage: CARBOPLATINO TEVA 10 MG/ML CONCENTRADO PARA SOLUCION PARA PERFUSION, 1 VIAL DE 45 ML
     Route: 042
     Dates: start: 20160528, end: 20160528

REACTIONS (3)
  - Erythema [Recovered/Resolved]
  - Vomiting [Recovered/Resolved]
  - Choking sensation [Recovered/Resolved]

NARRATIVE: CASE EVENT DATE: 20160528
